FAERS Safety Report 5496340-8 (Version None)
Quarter: 2007Q3

REPORT INFORMATION
  Report Type: 
  Country: None (occurrence: None)
  Receive Date: 20070924
  Receipt Date: 20070924
  Transmission Date: 20080115
  Serious: Yes (Other)
  Sender: FDA-Public Use
  Company Number: None

PATIENT
  Age: 46 Year
  Sex: Female
  Weight: 79.3795 kg

DRUGS (1)
  1. MIRENA [Suspect]
     Indication: MENORRHAGIA
     Dates: start: 20070730, end: 20070926

REACTIONS (6)
  - ACNE [None]
  - ALOPECIA [None]
  - DEPRESSION [None]
  - FATIGUE [None]
  - MOOD SWINGS [None]
  - URINARY INCONTINENCE [None]
